FAERS Safety Report 5066832-4 (Version None)
Quarter: 2006Q3

REPORT INFORMATION
  Report Type: 
  Country: None (occurrence: None)
  Receive Date: 20060801
  Receipt Date: 20060727
  Transmission Date: 20061208
  Serious: Yes (Hospitalization)
  Sender: FDA-Public Use
  Company Number: DE-AVENTIS-200612211DE

PATIENT
  Age: 65 Year
  Sex: Female
  Weight: 90 kg

DRUGS (7)
  1. DOCETAXEL [Suspect]
     Indication: BREAST CANCER
     Route: 042
     Dates: start: 20060629, end: 20060629
  2. GEMCITABINE [Suspect]
     Indication: BREAST CANCER
     Route: 042
     Dates: start: 20060629, end: 20060629
  3. GEMCITABINE [Suspect]
     Route: 042
     Dates: start: 20060518, end: 20060518
  4. GEMCITABINE [Suspect]
     Route: 042
     Dates: start: 20060705, end: 20060708
  5. MCP [Concomitant]
     Indication: PROPHYLAXIS OF NAUSEA AND VOMITING
     Route: 042
     Dates: start: 20060629, end: 20060629
  6. DEXAMETHASONE [Concomitant]
     Indication: PROPHYLAXIS OF NAUSEA AND VOMITING
     Route: 042
     Dates: start: 20060629, end: 20060629
  7. DEXAMETHASONE [Concomitant]
     Route: 048
     Dates: start: 20060630, end: 20060630

REACTIONS (1)
  - VITH NERVE PARALYSIS [None]
